FAERS Safety Report 16553960 (Version 1)
Quarter: 2019Q3

REPORT INFORMATION
  Report Type: Report from Study
  Country: TH (occurrence: TH)
  Receive Date: 20190710
  Receipt Date: 20190710
  Transmission Date: 20191004
  Serious: Yes (Hospitalization)
  Sender: FDA-Public Use
  Company Number: PHHO2017TH006992

PATIENT
  Age: 48 Year
  Sex: Male
  Weight: 51 kg

DRUGS (79)
  1. MAGNESIUM CHLORIDE. [Concomitant]
     Active Substance: MAGNESIUM CHLORIDE
     Dosage: 5 ML, TID
     Route: 048
     Dates: start: 20170419, end: 20170505
  2. MAGNESIUM CHLORIDE. [Concomitant]
     Active Substance: MAGNESIUM CHLORIDE
     Dosage: 10 ML, TID
     Route: 048
     Dates: start: 20170701, end: 20170809
  3. ONDANSETRON [Concomitant]
     Active Substance: ONDANSETRON
     Dosage: 8 MG, QD
     Route: 042
     Dates: start: 20170608, end: 20170608
  4. DEXAMETHASONE. [Concomitant]
     Active Substance: DEXAMETHASONE
     Dosage: 8.000 MG, BID
     Dates: start: 20170518, end: 20170521
  5. RANITIDINE. [Concomitant]
     Active Substance: RANITIDINE
     Indication: CHEMOTHERAPY
     Dosage: 50 MG, QD
     Route: 042
     Dates: start: 20170329, end: 20170329
  6. RANITIDINE. [Concomitant]
     Active Substance: RANITIDINE
     Dosage: 50 MG, QD
     Route: 042
     Dates: start: 20170627, end: 20170627
  7. PSEUDOEPHEDRINE. [Concomitant]
     Active Substance: PSEUDOEPHEDRINE HYDROCHLORIDE
     Indication: NASOPHARYNGITIS
     Dosage: 60 MG, TID
     Route: 048
     Dates: start: 20170518, end: 20170524
  8. LORATADINE. [Concomitant]
     Active Substance: LORATADINE
     Indication: NASOPHARYNGITIS
     Dosage: 1.0000, QD
     Route: 048
     Dates: start: 20170518, end: 20170527
  9. KCL [Concomitant]
     Active Substance: POTASSIUM CHLORIDE
     Dosage: 30.00 ML, BID
     Route: 048
     Dates: start: 20170925, end: 20170926
  10. ONDANSETRON [Concomitant]
     Active Substance: ONDANSETRON
     Dosage: 8 MG, BID
     Route: 048
     Dates: start: 20170608, end: 20170613
  11. DEXAMETHASONE. [Concomitant]
     Active Substance: DEXAMETHASONE
     Dosage: 8.000 MG, BID
     Route: 048
     Dates: start: 20170427, end: 20170430
  12. LORAZEPAM. [Concomitant]
     Active Substance: LORAZEPAM
     Dosage: 0.5 MG, QD
     Route: 048
     Dates: start: 20170518, end: 20170527
  13. LORAZEPAM. [Concomitant]
     Active Substance: LORAZEPAM
     Dosage: 0.5 MG, QD
     Route: 048
     Dates: start: 20170718, end: 20170727
  14. RANITIDINE. [Concomitant]
     Active Substance: RANITIDINE
     Dosage: 50 MG, QD
     Route: 042
     Dates: start: 20170427, end: 20170427
  15. CHLORPHENIRAMINE. [Concomitant]
     Active Substance: CHLORPHENIRAMINE
     Dosage: 10 MG, QD
     Route: 042
     Dates: start: 20170518, end: 20170518
  16. MAGNESIUM SULPHATE [Concomitant]
     Active Substance: MAGNESIUM SULFATE
     Dosage: 2.0000, QD
     Route: 042
     Dates: start: 20170831, end: 20170831
  17. KCL [Concomitant]
     Active Substance: POTASSIUM CHLORIDE
     Dosage: 30.00 ML, BID
     Route: 048
     Dates: start: 20170419, end: 20170608
  18. ONDANSETRON [Concomitant]
     Active Substance: ONDANSETRON
     Dosage: 8 MG, QD
     Route: 042
     Dates: start: 20170718, end: 20170718
  19. DEXAMETHASONE. [Concomitant]
     Active Substance: DEXAMETHASONE
     Dosage: 20.000 MG, QD
     Route: 042
     Dates: start: 20170427, end: 20170427
  20. RANITIDINE. [Concomitant]
     Active Substance: RANITIDINE
     Dosage: 50 MG, QD
     Route: 042
     Dates: start: 20170518, end: 20170518
  21. CHLORPHENIRAMINE. [Concomitant]
     Active Substance: CHLORPHENIRAMINE
     Indication: CHEMOTHERAPY
     Dosage: 10 MG, QD
     Route: 042
     Dates: start: 20170329, end: 20170329
  22. MAGNESIUM SULPHATE [Concomitant]
     Active Substance: MAGNESIUM SULFATE
     Indication: HYPOMAGNESAEMIA
     Dosage: 2.0000, QD
     Route: 042
     Dates: start: 20170628, end: 20170628
  23. COMPARATOR DOCETAXEL [Suspect]
     Active Substance: DOCETAXEL
     Dosage: 60 MG/M2, UNK
     Route: 041
     Dates: start: 20170518, end: 20170518
  24. LAMIVUDINE. [Concomitant]
     Active Substance: LAMIVUDINE
     Indication: PROPHYLAXIS
     Dosage: 150.000 MG, QD
     Route: 048
     Dates: start: 20150930
  25. MAGNESIUM CHLORIDE. [Concomitant]
     Active Substance: MAGNESIUM CHLORIDE
     Indication: HYPOMAGNESAEMIA
     Dosage: 5.000 ML, BID
     Route: 048
     Dates: start: 20170328, end: 20170409
  26. KCL [Concomitant]
     Active Substance: POTASSIUM CHLORIDE
     Dosage: 30.00 ML
     Route: 048
     Dates: start: 20171012, end: 20171013
  27. ONDANSETRON [Concomitant]
     Active Substance: ONDANSETRON
     Dosage: 8.000 MG, QD
     Route: 048
     Dates: start: 20170329, end: 20170403
  28. DEXAMETHASONE. [Concomitant]
     Active Substance: DEXAMETHASONE
     Indication: CHEMOTHERAPY
     Dosage: 20.000 MG, QD
     Route: 042
     Dates: start: 20170329, end: 20170329
  29. DEXAMETHASONE. [Concomitant]
     Active Substance: DEXAMETHASONE
     Dosage: 20.000 MG, QD
     Route: 042
     Dates: start: 20170608, end: 20170608
  30. DEXAMETHASONE. [Concomitant]
     Active Substance: DEXAMETHASONE
     Dosage: 8.000 MG, BID
     Route: 048
     Dates: start: 20170608, end: 20170611
  31. DEXAMETHASONE. [Concomitant]
     Active Substance: DEXAMETHASONE
     Dosage: 8.000 MG, BID
     Route: 048
     Dates: start: 20170627, end: 20170630
  32. DEXAMETHASONE. [Concomitant]
     Active Substance: DEXAMETHASONE
     Dosage: 20.000 MG, QD
     Route: 042
     Dates: start: 20170718, end: 20170718
  33. LORAZEPAM. [Concomitant]
     Active Substance: LORAZEPAM
     Indication: CHEMOTHERAPY
     Dosage: 0.5 MG, QD
     Route: 048
     Dates: start: 20170329, end: 20170407
  34. LORAZEPAM. [Concomitant]
     Active Substance: LORAZEPAM
     Dosage: 0.5 MG, QD
     Route: 048
     Dates: start: 20170608, end: 20170617
  35. RANITIDINE. [Concomitant]
     Active Substance: RANITIDINE
     Dosage: 50 MG, QD
     Route: 042
     Dates: start: 20170608, end: 20170608
  36. BROWN MIXTURE [Concomitant]
     Indication: NASOPHARYNGITIS
     Dosage: ML,  PRN
     Route: 048
     Dates: start: 20170518, end: 20170601
  37. MAGNESIUM SULPHATE [Concomitant]
     Active Substance: MAGNESIUM SULFATE
     Dosage: 2.0000, QD
     Route: 042
     Dates: start: 20170728, end: 20170728
  38. MAGNESIUM SULPHATE [Concomitant]
     Active Substance: MAGNESIUM SULFATE
     Dosage: 2.0000, QD
     Route: 042
     Dates: start: 20171018, end: 20171018
  39. MULTIVITAMIN [Concomitant]
     Active Substance: VITAMINS
     Indication: NUTRITIONAL SUPPLEMENTATION
     Dosage: 1.0000, QD
     Route: 048
     Dates: start: 20171018
  40. MAGNESIUM CHLORIDE. [Concomitant]
     Active Substance: MAGNESIUM CHLORIDE
     Dosage: 10 ML, TID
     Route: 048
     Dates: start: 20171012, end: 20171012
  41. KCL [Concomitant]
     Active Substance: POTASSIUM CHLORIDE
     Indication: HYPOKALAEMIA
     Dosage: 30.00 ML, BID
     Route: 048
     Dates: start: 20170328, end: 20170329
  42. DEXAMETHASONE. [Concomitant]
     Active Substance: DEXAMETHASONE
     Dosage: 20.000 MG, QD
     Route: 042
     Dates: start: 20170627, end: 20170627
  43. LORAZEPAM. [Concomitant]
     Active Substance: LORAZEPAM
     Dosage: 0.5 MG, QD
     Route: 048
     Dates: start: 20170427, end: 20170506
  44. CHLORPHENIRAMINE. [Concomitant]
     Active Substance: CHLORPHENIRAMINE
     Dosage: 10 MG, QD
     Route: 042
     Dates: start: 20170627, end: 20170627
  45. CHLORPHENIRAMINE. [Concomitant]
     Active Substance: CHLORPHENIRAMINE
     Dosage: 10 MG, QD
     Route: 042
     Dates: start: 20170718, end: 20170718
  46. CHLORPHENIRAMINE. [Concomitant]
     Active Substance: CHLORPHENIRAMINE
     Dosage: 10 MG, QD
     Route: 042
     Dates: start: 20171018, end: 20171018
  47. TARIVID OTIC [Concomitant]
     Indication: OTITIS MEDIA CHRONIC
     Dosage: 2 DRP, BID
     Route: 001
     Dates: start: 20170419
  48. NORMAL SALINE [Concomitant]
     Active Substance: SODIUM CHLORIDE
     Indication: FATIGUE
     Dosage: 1000 ML, UNK
     Route: 042
     Dates: start: 20171018, end: 20171019
  49. COMPARATOR DOCETAXEL [Suspect]
     Active Substance: DOCETAXEL
     Dosage: 60 MG/M2, UNK
     Route: 041
     Dates: start: 20170608, end: 20170608
  50. NO TREATMENT RECEIVED [Suspect]
     Active Substance: UNSPECIFIED INGREDIENT
     Indication: NASOPHARYNGEAL CANCER
     Dosage: NO TREATMENT
     Route: 065
  51. KCL [Concomitant]
     Active Substance: POTASSIUM CHLORIDE
     Dosage: 30.00 ML
     Route: 048
     Dates: start: 20171018, end: 20171019
  52. ONDANSETRON [Concomitant]
     Active Substance: ONDANSETRON
     Indication: CHEMOTHERAPY
     Dosage: 8.000 MG, QD
     Route: 042
     Dates: start: 20170329, end: 20170329
  53. ONDANSETRON [Concomitant]
     Active Substance: ONDANSETRON
     Dosage: 8 MG, QD
     Route: 042
     Dates: start: 20170627, end: 20170627
  54. CHLORPHENIRAMINE. [Concomitant]
     Active Substance: CHLORPHENIRAMINE
     Indication: RASH
     Dosage: 10 MG, QD
     Route: 042
     Dates: start: 20170427, end: 20170427
  55. CHLORPHENIRAMINE. [Concomitant]
     Active Substance: CHLORPHENIRAMINE
     Dosage: 10 MG, QD
     Route: 042
     Dates: start: 20170608, end: 20170608
  56. CODEPECT [Concomitant]
     Indication: NASOPHARYNGITIS
     Dosage: 1.0000, BID
     Route: 048
     Dates: start: 20170518, end: 20170522
  57. MAGNESIUM SULPHATE [Concomitant]
     Active Substance: MAGNESIUM SULFATE
     Dosage: 2.0000, QD
     Route: 042
     Dates: start: 20170925, end: 20170925
  58. FOLIC ACID. [Concomitant]
     Active Substance: FOLIC ACID
     Indication: ANAEMIA
     Dosage: 5.000 MG, QD
     Route: 048
     Dates: start: 20171018
  59. COMPARATOR DOCETAXEL [Suspect]
     Active Substance: DOCETAXEL
     Dosage: 60 MG/M2, UNK
     Route: 041
     Dates: start: 20170627, end: 20170627
  60. COMPARATOR DOCETAXEL [Suspect]
     Active Substance: DOCETAXEL
     Dosage: 60 MG/M2, UNK
     Route: 041
     Dates: start: 20170718, end: 20170718
  61. MAGNESIUM CHLORIDE. [Concomitant]
     Active Substance: MAGNESIUM CHLORIDE
     Dosage: 10 ML, TID
     Route: 048
     Dates: start: 20170627, end: 20170630
  62. MAGNESIUM CHLORIDE. [Concomitant]
     Active Substance: MAGNESIUM CHLORIDE
     Dosage: 10 ML, TID
     Route: 048
     Dates: start: 20170810
  63. KCL [Concomitant]
     Active Substance: POTASSIUM CHLORIDE
     Dosage: 30.00 ML, BID
     Route: 048
     Dates: start: 20170831, end: 20170901
  64. ONDANSETRON [Concomitant]
     Active Substance: ONDANSETRON
     Dosage: 8 MG, QD
     Route: 042
     Dates: start: 20170427, end: 20170427
  65. ONDANSETRON [Concomitant]
     Active Substance: ONDANSETRON
     Dosage: 8 MG, QD
     Route: 042
     Dates: start: 20170518, end: 20170518
  66. ONDANSETRON [Concomitant]
     Active Substance: ONDANSETRON
     Dosage: 8 MG, BID
     Route: 048
     Dates: start: 20170718, end: 20170721
  67. DEXAMETHASONE. [Concomitant]
     Active Substance: DEXAMETHASONE
     Dosage: 8.000 MG, BID
     Route: 048
     Dates: start: 20170329, end: 20170401
  68. DEXAMETHASONE. [Concomitant]
     Active Substance: DEXAMETHASONE
     Dosage: 20.000 MG, QD
     Route: 042
     Dates: start: 20170518, end: 20170518
  69. VITAMIN K [Concomitant]
     Active Substance: PHYTONADIONE
     Indication: NUTRITIONAL SUPPLEMENTATION
     Dosage: 10 MG, QD
     Route: 042
     Dates: start: 20171018, end: 20171018
  70. LACTULOSE. [Concomitant]
     Active Substance: LACTULOSE
     Indication: CONSTIPATION PROPHYLAXIS
     Dosage: 30 ML, QD
     Route: 048
     Dates: start: 20171018
  71. COMPARATOR DOCETAXEL [Suspect]
     Active Substance: DOCETAXEL
     Indication: NASOPHARYNGEAL CANCER
     Dosage: 75 MG/M2, Q3W
     Route: 041
     Dates: start: 20170329
  72. COMPARATOR DOCETAXEL [Suspect]
     Active Substance: DOCETAXEL
     Dosage: 60 MG/M2, UNK
     Route: 041
     Dates: start: 20170427, end: 20170427
  73. MAGNESIUM CHLORIDE. [Concomitant]
     Active Substance: MAGNESIUM CHLORIDE
     Dosage: 10 ML, BID
     Route: 048
     Dates: start: 20170518, end: 20170626
  74. ONDANSETRON [Concomitant]
     Active Substance: ONDANSETRON
     Dosage: 8 MG, BID
     Route: 048
     Dates: start: 20170427, end: 20170502
  75. ONDANSETRON [Concomitant]
     Active Substance: ONDANSETRON
     Dosage: 8 MG, BID
     Route: 048
     Dates: start: 20170518, end: 20170523
  76. ONDANSETRON [Concomitant]
     Active Substance: ONDANSETRON
     Dosage: 8 MG, BID
     Route: 048
     Dates: start: 20170627, end: 20170702
  77. DEXAMETHASONE. [Concomitant]
     Active Substance: DEXAMETHASONE
     Dosage: 8.000 MG, BID
     Route: 048
     Dates: start: 20170718, end: 20170721
  78. LORAZEPAM. [Concomitant]
     Active Substance: LORAZEPAM
     Dosage: 0.5 MG, QD
     Route: 048
     Dates: start: 20170627, end: 20170706
  79. RANITIDINE. [Concomitant]
     Active Substance: RANITIDINE
     Dosage: 50 MG, QD
     Route: 042
     Dates: start: 20170718, end: 20170718

REACTIONS (3)
  - Febrile neutropenia [Recovered/Resolved]
  - Gastroenteritis [Recovered/Resolved]
  - Septic shock [Recovered/Resolved]

NARRATIVE: CASE EVENT DATE: 20170403
